FAERS Safety Report 17512134 (Version 3)
Quarter: 2021Q4

REPORT INFORMATION
  Report Type: Spontaneous
  Country: PT (occurrence: PT)
  Receive Date: 20200306
  Receipt Date: 20211111
  Transmission Date: 20220303
  Serious: Yes (Other)
  Sender: FDA-Public Use
  Company Number: PT-ANGELINI FARMACEUTICA LDA-2020-022001

PATIENT
  Age: 12 Year
  Sex: Male

DRUGS (3)
  1. IBUPROFEN [Suspect]
     Active Substance: IBUPROFEN
     Indication: Drug provocation test
     Dosage: UNK
     Route: 065
     Dates: start: 201806
  2. IBUPROFEN [Suspect]
     Active Substance: IBUPROFEN
     Dosage: 300 MILLIGRAM
     Route: 065
  3. AMOXICILINA                        /00249601/ [Concomitant]
     Dosage: UNK
     Dates: start: 201806

REACTIONS (4)
  - Eyelid oedema [Unknown]
  - Drug hypersensitivity [Unknown]
  - Eye pruritus [Unknown]
  - Conjunctival hyperaemia [Unknown]

NARRATIVE: CASE EVENT DATE: 20180601
